FAERS Safety Report 21171125 (Version 1)
Quarter: 2022Q3

REPORT INFORMATION
  Report Type: Spontaneous
  Country: US (occurrence: US)
  Receive Date: 20220804
  Receipt Date: 20220804
  Transmission Date: 20221026
  Serious: Yes (Other)
  Sender: FDA-Public Use
  Company Number: US-AMGEN-USASP2022129898

PATIENT
  Age: 60 Year
  Sex: Female

DRUGS (6)
  1. BEVACIZUMAB [Suspect]
     Active Substance: BEVACIZUMAB
     Indication: Ovarian cancer
     Dosage: 15 MILLIGRAM/KILOGRAM
     Route: 065
  2. BEVACIZUMAB [Suspect]
     Active Substance: BEVACIZUMAB
     Dosage: 15 MILLIGRAM/KILOGRAM, EVERY 2-4 WEEKS
     Route: 065
  3. PEGFILGRASTIM [Suspect]
     Active Substance: PEGFILGRASTIM
     Indication: Prophylaxis
     Dosage: 6 MILLIGRAM
     Route: 065
  4. CARBOPLATIN [Concomitant]
     Active Substance: CARBOPLATIN
     Indication: Ovarian cancer
  5. PACLITAXEL [Concomitant]
     Active Substance: PACLITAXEL
     Indication: Ovarian cancer
     Dosage: 150 MILLIGRAM/M2
  6. IMMUNE GLOBULIN NOS [Concomitant]
     Active Substance: IMMUNE GLOBULIN NOS
     Dosage: 60 GRAM (1.6 G/KG/4 WEEKS)
     Route: 042

REACTIONS (23)
  - Neuropathy peripheral [Unknown]
  - Mycobacterium avium complex infection [Unknown]
  - Brucellosis [Unknown]
  - Ovarian cancer metastatic [Unknown]
  - Urinary incontinence [Unknown]
  - Bone pain [Unknown]
  - Palpitations [Unknown]
  - Anxiety [Unknown]
  - Headache [Unknown]
  - Dyspnoea exertional [Unknown]
  - Fatigue [Unknown]
  - Abdominal pain [Unknown]
  - Nausea [Unknown]
  - Abdominal discomfort [Unknown]
  - Urinary retention postoperative [Unknown]
  - Klebsiella infection [Unknown]
  - Infection susceptibility increased [Unknown]
  - Oral herpes [Recovered/Resolved]
  - Constipation [Unknown]
  - Diarrhoea [Unknown]
  - Myalgia [Unknown]
  - Infection [Unknown]
  - Urinary tract infection [Unknown]
